FAERS Safety Report 8186777-0 (Version None)
Quarter: 2012Q1

REPORT INFORMATION
  Report Type: 
  Country: None (occurrence: None)
  Receive Date: 20120306
  Receipt Date: 20120306
  Transmission Date: 20120608
  Serious: Yes (Hospitalization)
  Sender: FDA-Public Use
  Company Number: None

PATIENT
  Sex: Female
  Weight: 77.4 kg

DRUGS (1)
  1. INVANZ [Suspect]
     Indication: OSTEOMYELITIS
     Dosage: 1 GRAM
     Route: 042
     Dates: start: 20120222, end: 20120228

REACTIONS (2)
  - DELIRIUM [None]
  - HALLUCINATION, VISUAL [None]
